FAERS Safety Report 9496356 (Version 2)
Quarter: 2013Q4

REPORT INFORMATION
  Report Type: Spontaneous
  Country: US (occurrence: None)
  Receive Date: 20130829
  Receipt Date: 20131125
  Transmission Date: 20140711
  Serious: Yes (Death)
  Sender: FDA-Public Use
  Company Number: 1867133

PATIENT
  Age: 68 Year
  Sex: Female

DRUGS (6)
  1. MARCAINE [Suspect]
     Indication: CERVICOGENIC HEADACHE
     Route: 014
  2. MARCAINE [Suspect]
     Indication: RHEUMATOID ARTHRITIS
     Route: 014
  3. EPINEPHRINE [Suspect]
     Indication: CERVICOGENIC HEADACHE
     Route: 014
  4. EPINEPHRINE [Suspect]
     Indication: RHEUMATOID ARTHRITIS
     Route: 014
  5. DEPOMEDROL [Suspect]
     Indication: CERVICOGENIC HEADACHE
     Route: 014
  6. DEPOMEDROL [Suspect]
     Indication: RHEUMATOID ARTHRITIS
     Route: 014

REACTIONS (7)
  - Encephalitis [None]
  - Brain oedema [None]
  - Hydrocephalus [None]
  - Condition aggravated [None]
  - Hernia [None]
  - Brain death [None]
  - Injection related reaction [None]
